FAERS Safety Report 10871296 (Version 2)
Quarter: 2015Q1

REPORT INFORMATION
  Report Type: Spontaneous
  Country: NZ (occurrence: NZ)
  Receive Date: 20150226
  Receipt Date: 20150318
  Transmission Date: 20150721
  Serious: Yes (Hospitalization, Other)
  Sender: FDA-Public Use
  Company Number: NZ-UCBSA-2015005117

PATIENT
  Age: 72 Year
  Sex: Male
  Weight: 85.8 kg

DRUGS (2)
  1. GLYCERYL TRINITRATE [Suspect]
     Active Substance: NITROGLYCERIN
     Indication: ACUTE CORONARY SYNDROME
     Dosage: 400 ?G, AS NEEDED (PRN)
     Route: 060
     Dates: start: 20141024
  2. CARVEDILOL. [Suspect]
     Active Substance: CARVEDILOL
     Indication: ACUTE CORONARY SYNDROME
     Dosage: 12.5 MG, ONCE DAILY (QD)
     Route: 048
     Dates: start: 20150110, end: 20150110

REACTIONS (2)
  - Syncope [Recovered/Resolved]
  - Angina pectoris [Recovered/Resolved]

NARRATIVE: CASE EVENT DATE: 20150110
